FAERS Safety Report 8423087-8 (Version None)
Quarter: 2012Q2

REPORT INFORMATION
  Report Type: 
  Country: None (occurrence: None)
  Receive Date: 20120608
  Receipt Date: 20120601
  Transmission Date: 20120825
  Serious: Yes (Hospitalization)
  Sender: FDA-Public Use
  Company Number: JP-ASTRAZENECA-2012SE36150

PATIENT
  Age: 32656 Day
  Sex: Male

DRUGS (21)
  1. AZD6140 [Suspect]
     Indication: ACUTE CORONARY SYNDROME
     Route: 048
     Dates: start: 20111028
  2. CARVEDILOL [Concomitant]
     Route: 048
     Dates: start: 20111108
  3. SIGMART [Concomitant]
     Indication: CARDIAC FAILURE
     Route: 042
     Dates: start: 20111028, end: 20111028
  4. SIGMART [Concomitant]
     Indication: ANGINA PECTORIS
     Route: 042
     Dates: start: 20111028, end: 20111028
  5. SIGMART [Concomitant]
     Dates: start: 20111028, end: 20111028
  6. SIGMART [Concomitant]
     Route: 048
     Dates: start: 20111112
  7. CARVEDILOL [Concomitant]
     Route: 048
     Dates: start: 20111105, end: 20111107
  8. SIGMART [Concomitant]
     Indication: VASODILATATION
     Route: 042
     Dates: start: 20111028, end: 20111028
  9. SIGMART [Concomitant]
     Route: 048
     Dates: start: 20111112
  10. SIGMART [Concomitant]
     Route: 048
     Dates: start: 20111112
  11. ASPIRIN [Suspect]
     Indication: ACUTE CORONARY SYNDROME
     Route: 048
     Dates: start: 20111028, end: 20111028
  12. ASPIRIN [Suspect]
     Route: 048
     Dates: start: 20111029
  13. LIPITOR [Concomitant]
     Indication: HYPERLIPIDAEMIA
     Route: 048
     Dates: start: 20111030
  14. AMIODARONE HYDROCHLORIDE [Concomitant]
     Indication: ARRHYTHMIA
     Route: 048
     Dates: start: 20111108, end: 20111111
  15. SIGMART [Concomitant]
     Dates: start: 20111028, end: 20111028
  16. CARVEDILOL [Concomitant]
     Indication: ANGINA PECTORIS
     Route: 048
     Dates: start: 20111031, end: 20111104
  17. AMIODARONE HYDROCHLORIDE [Concomitant]
     Route: 048
     Dates: start: 20111112
  18. PERINDOPRIL ERBUMINE [Concomitant]
     Indication: HYPERTENSION
     Route: 048
     Dates: start: 20111030
  19. FAMOTIDINE [Concomitant]
     Indication: PROPHYLAXIS AGAINST GASTROINTESTINAL ULCER
     Route: 048
     Dates: start: 20111030
  20. SIGMART [Concomitant]
     Dates: start: 20111028, end: 20111028
  21. PLACEBO [Suspect]
     Indication: ACUTE CORONARY SYNDROME
     Route: 048
     Dates: start: 20111028

REACTIONS (1)
  - BRAIN CONTUSION [None]
